FAERS Safety Report 6875990-8 (Version None)
Quarter: 2010Q3

REPORT INFORMATION
  Report Type: 
  Country: None (occurrence: None)
  Receive Date: 20100727
  Receipt Date: 20070702
  Transmission Date: 20110219
  Serious: Yes (Hospitalization, Other)
  Sender: FDA-Public Use
  Company Number: US-PFIZER INC-2006151007

PATIENT
  Sex: Female
  Weight: 85.7 kg

DRUGS (5)
  1. CELEBREX [Suspect]
     Indication: PAIN
     Route: 048
     Dates: start: 19990101
  2. VIOXX [Suspect]
     Indication: PAIN
     Route: 048
     Dates: start: 20000101
  3. PREMARIN [Concomitant]
     Indication: HORMONE THERAPY
     Dates: start: 19870101
  4. ISOSORBIDE MONONITRATE [Concomitant]
     Indication: CHEST PAIN
     Dates: start: 20000101
  5. VYTORIN [Concomitant]
     Indication: BLOOD CHOLESTEROL INCREASED

REACTIONS (1)
  - MYOCARDIAL INFARCTION [None]
